FAERS Safety Report 19376490 (Version 1)
Quarter: 2021Q2

REPORT INFORMATION
  Report Type: Spontaneous
  Country: US (occurrence: US)
  Receive Date: 20210604
  Receipt Date: 20210604
  Transmission Date: 20210717
  Serious: Yes (Death, Other)
  Sender: FDA-Public Use
  Company Number: US-ALLERGAN-2121227US

PATIENT
  Sex: Male

DRUGS (3)
  1. MORPHINE SULFATE UNK [Suspect]
     Active Substance: MORPHINE SULFATE
     Indication: EXPOSURE DURING PREGNANCY
     Route: 064
  2. METHADONE [Suspect]
     Active Substance: METHADONE HYDROCHLORIDE
     Indication: EXPOSURE DURING PREGNANCY
     Route: 064
  3. FENTANIL [Suspect]
     Active Substance: FENTANYL
     Indication: EXPOSURE DURING PREGNANCY
     Route: 064

REACTIONS (2)
  - Pregnancy [Unknown]
  - Respiratory distress [Fatal]
